FAERS Safety Report 5093553-4 (Version None)
Quarter: 2006Q3

REPORT INFORMATION
  Report Type: 
  Country: None (occurrence: None)
  Receive Date: 20060826
  Receipt Date: 20060817
  Transmission Date: 20061208
  Serious: Yes (Other)
  Sender: FDA-Public Use
  Company Number: 2006101148

PATIENT
  Age: 77 Year
  Sex: Female

DRUGS (17)
  1. NORVASC [Suspect]
     Indication: DRUG USE FOR UNKNOWN INDICATION
     Dosage: 5 MG (5 MG, FREQUENCY: DAILY INTERVAL: EVERY DAY)
  2. AVAPRO [Concomitant]
  3. CELEBREX [Concomitant]
  4. PRAVACHOL [Concomitant]
  5. PREMARIN [Concomitant]
  6. CALCIUM WITH VITAMIN D (CALCIUM PHOSPHATE, CALCIUM SODIUM LACTATE, ERG [Concomitant]
  7. VITAMINS (VITAMINS) [Concomitant]
  8. NITROGLYCERIN [Concomitant]
  9. DITOPRAN XL (OXYBUTYNIN HYDROCHLORIDE) [Concomitant]
  10. DRISDOL [Concomitant]
  11. TRAZODONE HCL [Concomitant]
  12. TRAMADOL HCL [Concomitant]
  13. HYDROCODONE (HYDROCODONE) [Concomitant]
  14. FENTANYL [Concomitant]
  15. MIRALAX [Concomitant]
  16. TYLENOL W/ CODEINE [Concomitant]
  17. QUININE SULFATE [Concomitant]

REACTIONS (5)
  - BLOOD CHOLESTEROL INCREASED [None]
  - HYPERTENSION [None]
  - PHARMACEUTICAL PRODUCT COUNTERFEIT [None]
  - SPINAL FUSION SURGERY [None]
  - UNEVALUABLE EVENT [None]
